FAERS Safety Report 23981628 (Version 2)
Quarter: 2024Q2

REPORT INFORMATION
  Report Type: Spontaneous
  Country: US (occurrence: US)
  Receive Date: 20240617
  Receipt Date: 20240617
  Transmission Date: 20240716
  Serious: Yes (Disabling)
  Sender: FDA-Public Use
  Company Number: US-PFIZER INC-202400192765

PATIENT
  Age: 71 Year
  Sex: Female

DRUGS (2)
  1. PAXLOVID [Suspect]
     Active Substance: NIRMATRELVIR\RITONAVIR
     Indication: COVID-19 treatment
     Dosage: UNK
  2. SYNTHROID [Concomitant]
     Active Substance: LEVOTHYROXINE SODIUM
     Dosage: UNK

REACTIONS (10)
  - Gastrointestinal disorder [Unknown]
  - Taste disorder [Unknown]
  - Dry mouth [Unknown]
  - Nausea [Unknown]
  - Gastrooesophageal reflux disease [Unknown]
  - Muscular weakness [Unknown]
  - Brain fog [Unknown]
  - Fatigue [Unknown]
  - Abdominal discomfort [Unknown]
  - Gastritis [Unknown]

NARRATIVE: CASE EVENT DATE: 20220601
